FAERS Safety Report 4924738-2 (Version None)
Quarter: 2006Q1

REPORT INFORMATION
  Report Type: 
  Country: None (occurrence: None)
  Receive Date: 20060222
  Receipt Date: 20060203
  Transmission Date: 20060701
  Serious: Yes (Death, Hospitalization)
  Sender: FDA-Public Use
  Company Number: GXKR2005CH02320

PATIENT
  Age: 75 Year
  Sex: Male

DRUGS (9)
  1. LISINOPRIL [Suspect]
     Indication: HYPERTENSION
     Dosage: 2.5 MG, QD
     Dates: start: 20050101, end: 20050927
  2. EFFEXOR [Suspect]
     Indication: MOOD DISORDER DUE TO A GENERAL MEDICAL CONDITION
     Dosage: 75 MG, QD, ORAL
     Route: 048
     Dates: start: 20050101, end: 20050927
  3. NEXIUM [Suspect]
     Indication: DYSPEPSIA
     Dosage: 20 MG, QD, ORAL
     Route: 048
     Dates: start: 20050101, end: 20050927
  4. GLUCOPHAGE [Suspect]
     Indication: DIABETES MELLITUS NON-INSULIN-DEPENDENT
     Dosage: 500 MG, TID, ORAL
     Route: 048
     Dates: start: 20050101, end: 20050927
  5. PRAVASTATIN SODIUM [Suspect]
     Indication: HYPERLIPIDAEMIA
     Dosage: 20 MG, QD, ORAL
     Route: 048
     Dates: start: 20050101, end: 20050927
  6. ASPIRIN [Suspect]
     Indication: PLATELET AGGREGATION INHIBITION
     Dosage: 100 MG, QD
     Dates: start: 20050101, end: 20051004
  7. TOREM (TORASEMIDE) [Concomitant]
  8. PRADIF (TAMSULOSIN HYDROCHLORIDE) [Concomitant]
  9. PROSCAR [Concomitant]

REACTIONS (13)
  - ALCOHOLISM [None]
  - BLOOD CULTURE POSITIVE [None]
  - CONDITION AGGRAVATED [None]
  - DUODENAL ULCER [None]
  - ENCEPHALOPATHY [None]
  - GENERAL PHYSICAL HEALTH DETERIORATION [None]
  - HEPATIC FAILURE [None]
  - HEPATIC NEOPLASM MALIGNANT [None]
  - HEPATITIS CHOLESTATIC [None]
  - JAUNDICE CHOLESTATIC [None]
  - MELAENA [None]
  - PORTAL VEIN THROMBOSIS [None]
  - STREPTOCOCCAL INFECTION [None]
